FAERS Safety Report 4676853-9 (Version None)
Quarter: 2005Q2

REPORT INFORMATION
  Report Type: 
  Country: None (occurrence: None)
  Receive Date: 20050527
  Receipt Date: 20050513
  Transmission Date: 20051028
  Serious: Yes (Death, Hospitalization)
  Sender: FDA-Public Use
  Company Number: 2004BI002228

PATIENT
  Age: 60 Year
  Sex: Female

DRUGS (10)
  1. AVONEX [Suspect]
     Indication: MULTIPLE SCLEROSIS
     Dosage: 30 UG;QW;IM
     Route: 030
     Dates: start: 19970101, end: 20030101
  2. AVONEX [Suspect]
     Indication: MULTIPLE SCLEROSIS
     Dosage: 30 UG;QW;IM
     Route: 030
     Dates: start: 20030101, end: 20030101
  3. CELEBREX [Concomitant]
  4. LEVOXYL [Concomitant]
  5. EVISTA [Concomitant]
  6. ZOLOFT [Concomitant]
  7. ACIPHEX [Concomitant]
  8. TRAZODONE [Concomitant]
  9. ADVAIR DISKUS 100/50 [Concomitant]
  10. NASACORT [Concomitant]

REACTIONS (8)
  - ANOXIC ENCEPHALOPATHY [None]
  - CARDIO-RESPIRATORY ARREST [None]
  - CONDITION AGGRAVATED [None]
  - IMMUNOSUPPRESSION [None]
  - LUNG INFECTION PSEUDOMONAL [None]
  - METHAEMOGLOBINAEMIA [None]
  - PSEUDOMONAS INFECTION [None]
  - SINUSITIS [None]
